FAERS Safety Report 14212466 (Version 1)
Quarter: 2017Q4

REPORT INFORMATION
  Report Type: Spontaneous
  Country: US (occurrence: US)
  Receive Date: 20171122
  Receipt Date: 20171122
  Transmission Date: 20180321
  Serious: Yes (Hospitalization)
  Sender: FDA-Public Use
  Company Number: US-009507513-1711USA005317

PATIENT
  Age: 28 Year
  Sex: Female
  Weight: 112.2 kg

DRUGS (1)
  1. NEXPLANON [Suspect]
     Active Substance: ETONOGESTREL
     Indication: CONTRACEPTION
     Dosage: ONE ROD EVERY 3 YEARS
     Route: 059
     Dates: start: 20170826, end: 20170929

REACTIONS (5)
  - Implant site erythema [Recovered/Resolved]
  - Inappropriate schedule of drug administration [Unknown]
  - Staphylococcus test positive [Unknown]
  - Implant site discharge [Recovered/Resolved]
  - Implant site infection [Recovered/Resolved]

NARRATIVE: CASE EVENT DATE: 201708
